FAERS Safety Report 12529884 (Version 1)
Quarter: 2016Q3

REPORT INFORMATION
  Report Type: Spontaneous
  Country: US (occurrence: None)
  Receive Date: 20160705
  Receipt Date: 20160705
  Transmission Date: 20161109
  Serious: Yes (Death, Life-Threatening, Hospitalization)
  Sender: FDA-Public Use
  Company Number: None

PATIENT
  Age: 82 Year
  Sex: Male
  Weight: 101.61 kg

DRUGS (16)
  1. NORVASC [Concomitant]
     Active Substance: AMLODIPINE BESYLATE
  2. GLIPIZIDE XL [Concomitant]
     Active Substance: GLIPIZIDE
  3. VITAMIN C [Concomitant]
     Active Substance: ASCORBIC ACID
  4. FOFINOPRIL [Concomitant]
  5. HCTX [Concomitant]
  6. IRON [Concomitant]
     Active Substance: IRON
  7. JANUVIA [Concomitant]
     Active Substance: SITAGLIPTIN PHOSPHATE
  8. TRICOR [Concomitant]
     Active Substance: FENOFIBRATE
  9. FINASTERIDE. [Concomitant]
     Active Substance: FINASTERIDE
  10. TERZOSIN [Concomitant]
  11. VITAMIN B12 [Concomitant]
     Active Substance: CYANOCOBALAMIN
  12. ACTOS [Suspect]
     Active Substance: PIOGLITAZONE HYDROCHLORIDE
     Indication: DIABETES MELLITUS
     Dosage: 30 TABLET(S) IN THE MORNING TAKEN BY MOUTH
     Route: 048
     Dates: start: 20080409, end: 20150619
  13. MAGNESIUM [Concomitant]
     Active Substance: MAGNESIUM
  14. MVI [Concomitant]
     Active Substance: VITAMINS
  15. METFORMIN [Concomitant]
     Active Substance: METFORMIN HYDROCHLORIDE
  16. METOPROLOL. [Concomitant]
     Active Substance: METOPROLOL

REACTIONS (6)
  - Metastases to abdominal cavity [None]
  - Ascites [None]
  - Blood urine present [None]
  - Metastases to lymph nodes [None]
  - Bladder cancer [None]
  - Pain [None]

NARRATIVE: CASE EVENT DATE: 20150619
